FAERS Safety Report 12817076 (Version 1)
Quarter: 2016Q4

REPORT INFORMATION
  Report Type: Spontaneous
  Country: US (occurrence: US)
  Receive Date: 20161005
  Receipt Date: 20161005
  Transmission Date: 20170207
  Serious: Yes (Hospitalization, Other)
  Sender: FDA-Public Use
  Company Number: None

PATIENT
  Age: 6 Month
  Sex: Male

DRUGS (4)
  1. TYLONE [Concomitant]
  2. BABY TEETHING (HYLAND HOMEOPATHIC) [Suspect]
     Active Substance: HOMEOPATHICS
     Indication: TEETHING
     Route: 048
     Dates: start: 20060208, end: 20060330
  3. BABY ORAJEL [Concomitant]
  4. GRIP WATER [Concomitant]

REACTIONS (2)
  - Pyrexia [None]
  - Seizure [None]

NARRATIVE: CASE EVENT DATE: 20060208
